FAERS Safety Report 18013205 (Version 3)
Quarter: 2020Q3

REPORT INFORMATION
  Report Type: Spontaneous
  Country: US (occurrence: US)
  Receive Date: 20200713
  Receipt Date: 20200923
  Transmission Date: 20201103
  Serious: No
  Sender: FDA-Public Use
  Company Number: US-PFIZER INC-2020265936

PATIENT
  Age: 51 Year
  Sex: Female
  Weight: 70.31 kg

DRUGS (3)
  1. EUCRISA [Suspect]
     Active Substance: CRISABOROLE
     Indication: DERMATITIS ATOPIC
     Dosage: 2 %, 2X/DAY (2% MULTIPLE TIMES A DAY)
     Route: 061
     Dates: start: 201910, end: 20200716
  2. EUCRISA [Suspect]
     Active Substance: CRISABOROLE
     Indication: ECZEMA
  3. DUPIXENT [Suspect]
     Active Substance: DUPILUMAB
     Indication: RASH MACULAR
     Dosage: UNK
     Dates: start: 202001

REACTIONS (6)
  - Facial pain [Recovered/Resolved]
  - Application site pain [Unknown]
  - Arthralgia [Recovered/Resolved]
  - Rash macular [Unknown]
  - Inflammation [Unknown]
  - Fatigue [Recovered/Resolved]
